FAERS Safety Report 6984479-7 (Version None)
Quarter: 2010Q3

REPORT INFORMATION
  Report Type: 
  Country: None (occurrence: None)
  Receive Date: 20100913
  Receipt Date: 20100827
  Transmission Date: 20110219
  Serious: Yes (Hospitalization)
  Sender: FDA-Public Use
  Company Number: 017945

PATIENT
  Sex: Female

DRUGS (2)
  1. CIMZIA [Suspect]
     Dosage: (400 MG 1X/MONTH SUBCUTANEOUS)
     Route: 058
  2. PREDNISONE [Suspect]

REACTIONS (9)
  - AMNESIA [None]
  - COMMUNICATION DISORDER [None]
  - CONDITION AGGRAVATED [None]
  - CONFUSIONAL STATE [None]
  - CROHN'S DISEASE [None]
  - DEMENTIA [None]
  - ILLITERACY [None]
  - INFECTION [None]
  - STAPHYLOCOCCAL INFECTION [None]
